FAERS Safety Report 9646218 (Version 1)
Quarter: 2013Q4

REPORT INFORMATION
  Report Type: Spontaneous
  Country: GB (occurrence: None)
  Receive Date: 20131024
  Receipt Date: 20131024
  Transmission Date: 20140711
  Serious: Yes (Other)
  Sender: FDA-Public Use
  Company Number: AUR-APL-2013-08640

PATIENT
  Age: 47 Year
  Sex: Male
  Weight: 99 kg

DRUGS (7)
  1. RIBAVIRIN (RIBAVIRIN) [Suspect]
     Indication: HEPATITIS C
     Route: 048
     Dates: start: 20130201
  2. PEGINTERFERON ALFA-2B [Suspect]
     Indication: HEPATITIS C
     Route: 058
     Dates: start: 20130201
  3. TELAPREVIR (TELAPREVIR) [Suspect]
     Indication: HEPATITIS C
     Dosage: 2250 MG (750 MG, 3 IN 1 D), ORAL
     Route: 048
     Dates: start: 20130201, end: 20130425
  4. BETAMETHASONE (BETAMETHASONE) [Concomitant]
  5. HYDROMOL OINTMENT (HYDROMOL) [Concomitant]
  6. OMEPRAZOLE (OMEPRAZOLE) [Concomitant]
  7. DOMPERIDONE (DOMPERIDONE) [Concomitant]

REACTIONS (13)
  - Nausea [None]
  - Cough [None]
  - Pruritus [None]
  - Rash [None]
  - Ageusia [None]
  - Folliculitis [None]
  - Oral candidiasis [None]
  - Lethargy [None]
  - Erythema [None]
  - Dyspnoea [None]
  - Mouth ulceration [None]
  - Chest discomfort [None]
  - Skin hypertrophy [None]
